FAERS Safety Report 9459203 (Version 1)
Quarter: 2013Q3

REPORT INFORMATION
  Report Type: Spontaneous
  Country: CH (occurrence: CH)
  Receive Date: 20130814
  Receipt Date: 20130814
  Transmission Date: 20140515
  Serious: Yes (Other)
  Sender: FDA-Public Use
  Company Number: CH-ROCHE-1260676

PATIENT
  Sex: Male

DRUGS (9)
  1. MABTHERA [Suspect]
     Indication: B-CELL LYMPHOMA
     Route: 065
  2. DEXAMETHASONE [Concomitant]
     Indication: CHRONIC LYMPHOCYTIC LEUKAEMIA
  3. CYTARABINE [Concomitant]
     Indication: CHRONIC LYMPHOCYTIC LEUKAEMIA
  4. CISPLATIN [Concomitant]
     Indication: CHRONIC LYMPHOCYTIC LEUKAEMIA
  5. CYCLOPHOSPHAMIDE [Concomitant]
     Indication: B-CELL LYMPHOMA
  6. VINCRISTIN [Concomitant]
     Indication: CHRONIC LYMPHOCYTIC LEUKAEMIA
  7. PREDNISOLON [Concomitant]
  8. ZEVALIN [Concomitant]
     Indication: B-CELL LYMPHOMA
  9. ARZERRA [Concomitant]
     Indication: B-CELL LYMPHOMA

REACTIONS (1)
  - Disease progression [Unknown]
